FAERS Safety Report 5997509-6 (Version None)
Quarter: 2008Q4

REPORT INFORMATION
  Report Type: 
  Country: None (occurrence: None)
  Receive Date: 20081212
  Receipt Date: 20081113
  Transmission Date: 20090506
  Serious: No
  Sender: FDA-Public Use
  Company Number: US-ABBOTT-08P-163-0487823-00

PATIENT
  Sex: Female
  Weight: 136.2 kg

DRUGS (2)
  1. HUMIRA [Suspect]
     Indication: PSORIASIS
     Route: 058
     Dates: start: 20081017, end: 20081017
  2. HUMIRA [Suspect]
     Route: 058
     Dates: start: 20081031, end: 20081113

REACTIONS (4)
  - CHEST PAIN [None]
  - HEADACHE [None]
  - LUNG DISORDER [None]
  - PAIN [None]
